FAERS Safety Report 9961857 (Version 1)
Quarter: 2014Q1

REPORT INFORMATION
  Report Type: Report from Study
  Country: US (occurrence: US)
  Receive Date: 20140305
  Receipt Date: 20140305
  Transmission Date: 20141002
  Serious: No
  Sender: FDA-Public Use
  Company Number: US-ABBVIE-13P-163-1113527-00

PATIENT
  Age: 55 Year
  Sex: Female

DRUGS (6)
  1. HUMIRA [Suspect]
     Indication: PSORIATIC ARTHROPATHY
     Dates: start: 20130601
  2. CELEXA [Concomitant]
     Indication: ANXIETY
     Dosage: 20MG DAILY
  3. CELEXA [Concomitant]
     Indication: BIPOLAR DISORDER
  4. LOSARTAN / HYDROCHLOROTHIAZID STADA [Concomitant]
     Indication: HYPERTENSION
     Dosage: 50MG/12.5MG DAILY
  5. LORTAB [Concomitant]
     Indication: PAIN
  6. FIORICET [Concomitant]
     Indication: MIGRAINE

REACTIONS (2)
  - Injection site pruritus [Not Recovered/Not Resolved]
  - Rash erythematous [Not Recovered/Not Resolved]
